FAERS Safety Report 22269734 (Version 1)
Quarter: 2023Q2

REPORT INFORMATION
  Report Type: Spontaneous
  Country: US (occurrence: US)
  Receive Date: 20230501
  Receipt Date: 20230501
  Transmission Date: 20230722
  Serious: No
  Sender: FDA-Public Use
  Company Number: US-SA-SAC20230426001598

PATIENT
  Sex: Male
  Weight: 49.3 kg

DRUGS (4)
  1. DUPIXENT [Suspect]
     Active Substance: DUPILUMAB
     Indication: Dermatitis
     Dosage: 300 MG, QOW
     Route: 058
     Dates: start: 2021
  2. SOFOSBUVIR [Concomitant]
     Active Substance: SOFOSBUVIR
  3. SOAP [Concomitant]
     Active Substance: SOAP
  4. SARNA [Concomitant]
     Active Substance: CAMPHOR (SYNTHETIC)\MENTHOL

REACTIONS (2)
  - Pruritus [Not Recovered/Not Resolved]
  - Product use in unapproved indication [Unknown]

NARRATIVE: CASE EVENT DATE: 20210101
